FAERS Safety Report 7675686-9 (Version None)
Quarter: 2011Q3

REPORT INFORMATION
  Report Type: 
  Country: None (occurrence: None)
  Receive Date: 20110810
  Receipt Date: 20110805
  Transmission Date: 20111222
  Serious: Yes (Death)
  Sender: FDA-Public Use
  Company Number: US-CELGENEUS-163-21880-11072188

PATIENT
  Sex: Male
  Weight: 81.72 kg

DRUGS (8)
  1. REVLIMID [Suspect]
     Indication: MYELODYSPLASTIC SYNDROME
     Dosage: 10 MILLIGRAM
     Route: 048
     Dates: start: 20100818, end: 20110719
  2. DECADRON [Concomitant]
     Dosage: 40 MILLIGRAM
     Route: 048
  3. PROCRIT [Concomitant]
     Dosage: 20000 UNITS
     Route: 058
     Dates: start: 20100101
  4. RED BLOOD CELLS [Concomitant]
     Dosage: 2 UNITS
     Route: 041
     Dates: start: 20100101
  5. PLATELETS [Concomitant]
     Dosage: 6 UNITS
     Route: 041
     Dates: start: 20100101
  6. REVLIMID [Suspect]
  7. REVLIMID [Suspect]
  8. RED BLOOD CELLS [Concomitant]
     Dosage: 2 UNITS
     Route: 041
     Dates: start: 20110601

REACTIONS (1)
  - MYELODYSPLASTIC SYNDROME [None]
